FAERS Safety Report 7483116-5 (Version None)
Quarter: 2011Q2

REPORT INFORMATION
  Report Type: 
  Country: None (occurrence: None)
  Receive Date: 20110516
  Receipt Date: 20100429
  Transmission Date: 20111010
  Serious: Yes (Other)
  Sender: FDA-Public Use
  Company Number: DE-GENENTECH-318559

PATIENT
  Age: 88 Year
  Sex: Female

DRUGS (1)
  1. LUCENTIS [Suspect]
     Indication: PRODUCT USED FOR UNKNOWN INDICATION
     Route: 031

REACTIONS (4)
  - INJECTION SITE HAEMATOMA [None]
  - ASTHENIA [None]
  - VISUAL ACUITY REDUCED [None]
  - GAIT DISTURBANCE [None]
